FAERS Safety Report 12639435 (Version 1)
Quarter: 2016Q3

REPORT INFORMATION
  Report Type: Other
  Country: CA (occurrence: CA)
  Receive Date: 20160810
  Receipt Date: 20160810
  Transmission Date: 20161109
  Serious: Yes (Hospitalization)
  Sender: FDA-Public Use
  Company Number: CA-SHIRE-CA201608859

PATIENT
  Sex: Female

DRUGS (3)
  1. REVESTIVE [Suspect]
     Active Substance: TEDUGLUTIDE
     Indication: SHORT-BOWEL SYNDROME
     Dosage: 2.33 MG, 1X/DAY:QD
     Route: 058
     Dates: start: 20160804
  2. REVESTIVE [Suspect]
     Active Substance: TEDUGLUTIDE
     Dosage: 3.1 MG, 1X/DAY:QD
     Route: 058
     Dates: end: 20160622
  3. BENADRYL [Concomitant]
     Active Substance: DIPHENHYDRAMINE HYDROCHLORIDE
     Indication: PRODUCT USED FOR UNKNOWN INDICATION
     Dosage: 50 TO 100 MG, UNKNOWN
     Route: 065

REACTIONS (3)
  - Gastrointestinal motility disorder [Unknown]
  - Hypersensitivity [Unknown]
  - Dehydration [Unknown]
